FAERS Safety Report 18997795 (Version 18)
Quarter: 2024Q1

REPORT INFORMATION
  Report Type: Report from Study
  Country: BR (occurrence: BR)
  Receive Date: 20210311
  Receipt Date: 20240213
  Transmission Date: 20240410
  Serious: Yes (Other)
  Sender: FDA-Public Use
  Company Number: BR-TAKEDA-BR202016960

PATIENT
  Age: 20 Year
  Sex: Male
  Weight: 41 kg

DRUGS (19)
  1. IDURSULFASE [Suspect]
     Active Substance: IDURSULFASE
     Indication: Mucopolysaccharidosis II
     Dosage: UNK
     Route: 042
     Dates: start: 2010
  2. IDURSULFASE [Suspect]
     Active Substance: IDURSULFASE
     Dosage: 5 DOSAGE FORM, 1/WEEK
     Route: 065
  3. IDURSULFASE [Suspect]
     Active Substance: IDURSULFASE
     Dosage: 5 DOSAGE FORM
     Route: 065
  4. IDURSULFASE [Suspect]
     Active Substance: IDURSULFASE
     Dosage: 5 DOSAGE FORM, 1/WEEK
     Route: 042
  5. IDURSULFASE [Suspect]
     Active Substance: IDURSULFASE
     Dosage: 5 DOSAGE FORM
     Route: 042
  6. IDURSULFASE [Suspect]
     Active Substance: IDURSULFASE
     Dosage: 3 DOSAGE FORM, 1/WEEK
     Route: 042
  7. IDURSULFASE [Suspect]
     Active Substance: IDURSULFASE
     Dosage: 0.5 MILLIGRAM/KILOGRAM, 1/WEEK
     Route: 042
  8. PROPRANOLOL HYDROCHLORIDE [Concomitant]
     Active Substance: PROPRANOLOL HYDROCHLORIDE
     Indication: Cardiac disorder
     Dosage: 20 MILLIGRAM, BID
     Route: 065
  9. PROPRANOLOL HYDROCHLORIDE [Concomitant]
     Active Substance: PROPRANOLOL HYDROCHLORIDE
     Indication: Hypotension
  10. CAPTOPRIL [Concomitant]
     Active Substance: CAPTOPRIL
     Indication: Blood pressure fluctuation
     Dosage: 12 MILLIGRAM, BID
     Route: 065
  11. CAPTOPRIL [Concomitant]
     Active Substance: CAPTOPRIL
     Indication: Hypotension
     Dosage: 12.5 MILLIGRAM, BID
     Route: 065
  12. SPIRONOLACTONE [Concomitant]
     Active Substance: SPIRONOLACTONE
     Indication: Cardiac disorder
     Dosage: 25 MILLIGRAM, QD
     Route: 065
  13. LORATADINE [Concomitant]
     Active Substance: LORATADINE
     Indication: Hypersensitivity
     Dosage: 1 DOSAGE FORM
     Route: 065
  14. LORATADINE [Concomitant]
     Active Substance: LORATADINE
     Dosage: 10 MILLIGRAM
  15. DIPYRONE [Concomitant]
     Active Substance: DIPYRONE
     Indication: Product used for unknown indication
     Dosage: UNK
     Route: 065
  16. IVERMECTIN [Concomitant]
     Active Substance: IVERMECTIN
     Indication: Product used for unknown indication
     Dosage: 2 DOSAGE FORM, 2/MONTH
     Route: 065
     Dates: start: 20210301
  17. Apevitin bc [Concomitant]
     Indication: Vitamin supplementation
     Dosage: UNK, QD
     Route: 065
  18. LORATADINE [Concomitant]
     Active Substance: LORATADINE
     Indication: Hypersensitivity
     Dosage: 10 MILLIGRAM
     Route: 065
  19. INFLUENZA VIRUS VACCINE [Concomitant]
     Active Substance: INFLUENZA VIRUS VACCINE
     Dosage: UNK
     Route: 065
     Dates: start: 20210818

REACTIONS (18)
  - Urinary tract infection [Recovered/Resolved]
  - COVID-19 [Recovered/Resolved]
  - Decreased appetite [Recovering/Resolving]
  - Weight fluctuation [Unknown]
  - Influenza like illness [Unknown]
  - Dysphonia [Unknown]
  - Influenza [Not Recovered/Not Resolved]
  - Malaise [Unknown]
  - Insurance issue [Unknown]
  - Product availability issue [Unknown]
  - Weight decreased [Unknown]
  - Hypersensitivity [Recovered/Resolved]
  - Product dose omission issue [Unknown]
  - Product administration error [Unknown]
  - Intentional dose omission [Unknown]
  - Product use issue [Unknown]
  - Inappropriate schedule of product administration [Unknown]
  - Dose calculation error [Recovered/Resolved]

NARRATIVE: CASE EVENT DATE: 20200820
